FAERS Safety Report 9458261 (Version 1)
Quarter: 2013Q3

REPORT INFORMATION
  Report Type: Spontaneous
  Country: FR (occurrence: FR)
  Receive Date: 20130814
  Receipt Date: 20130814
  Transmission Date: 20140515
  Serious: Yes (Other)
  Sender: FDA-Public Use
  Company Number: FR-PFIZER INC-2013234191

PATIENT
  Age: 65 Year
  Sex: Male

DRUGS (8)
  1. ARGANOVA [Suspect]
     Indication: HEPARIN-INDUCED THROMBOCYTOPENIA
     Dosage: 2 UG/KG/MIN
     Route: 041
     Dates: start: 20130702, end: 20130703
  2. TAZOCILLINE [Concomitant]
     Indication: BACTERIAL SEPSIS
     Dosage: UNK
     Route: 065
     Dates: start: 201306
  3. AMLOR [Concomitant]
     Dosage: UNK
  4. CARDENSIEL [Concomitant]
     Dosage: UNK
  5. LASILIX [Concomitant]
     Dosage: UNK
  6. HEPARIN SODIUM [Concomitant]
     Dosage: UNK
     Dates: start: 20130615, end: 20130702
  7. PARACETAMOL [Concomitant]
     Dosage: UNK
  8. SONDALIS HP [Concomitant]
     Dosage: UNK

REACTIONS (3)
  - Pancreatitis acute [Recovered/Resolved]
  - Prescribed overdose [Recovered/Resolved]
  - Medication error [Recovered/Resolved]
